FAERS Safety Report 17248354 (Version 2)
Quarter: 2020Q1

REPORT INFORMATION
  Report Type: Report from Study
  Country: KR (occurrence: KR)
  Receive Date: 20200108
  Receipt Date: 20200330
  Transmission Date: 20200409
  Serious: Yes (Death, Hospitalization, Other)
  Sender: FDA-Public Use
  Company Number: KR-ASTRAZENECA-2020SE01606

PATIENT
  Age: 25493 Day
  Sex: Female

DRUGS (12)
  1. TAGRISSO [Suspect]
     Active Substance: OSIMERTINIB
     Indication: LUNG NEOPLASM MALIGNANT
     Route: 048
     Dates: start: 20181111, end: 20190125
  2. TAGRISSO [Suspect]
     Active Substance: OSIMERTINIB
     Indication: LUNG NEOPLASM MALIGNANT
     Route: 048
     Dates: start: 20190131
  3. SYNTHYROXINE [Concomitant]
     Active Substance: LEVOTHYROXINE SODIUM
     Indication: HYPOTHYROIDISM
     Route: 065
     Dates: end: 20190407
  4. CRAVIT [Concomitant]
     Active Substance: LEVOFLOXACIN
     Indication: DECUBITUS ULCER
     Dates: start: 20181121
  5. NEURONTIN [Concomitant]
     Active Substance: GABAPENTIN
     Indication: DIABETIC NEUROPATHY
     Dates: start: 20181121
  6. CONCOR [Concomitant]
     Active Substance: BISOPROLOL FUMARATE
     Indication: SINUS TACHYCARDIA
     Dates: start: 20190208
  7. TARGIN CR [Concomitant]
     Active Substance: NALOXONE HYDROCHLORIDE\OXYCODONE HYDROCHLORIDE
     Indication: CANCER PAIN
     Dosage: 10/5MG
     Dates: start: 20181027
  8. IRCODONE [Concomitant]
     Indication: PAIN PROPHYLAXIS
     Route: 065
     Dates: start: 20181109, end: 201903
  9. NEURONTIN [Concomitant]
     Active Substance: GABAPENTIN
     Indication: DIABETIC NEUROPATHY
     Dates: start: 20190125
  10. CRAVIT [Concomitant]
     Active Substance: LEVOFLOXACIN
     Indication: HYPERTENSION
     Dates: start: 20181121
  11. SYNTHYROXINE [Concomitant]
     Active Substance: LEVOTHYROXINE SODIUM
     Indication: HYPOTHYROIDISM
     Route: 065
     Dates: start: 20181109, end: 201903
  12. DICAMAX D [Concomitant]
     Indication: HYPOCALCAEMIA
     Dates: start: 20190128, end: 20190407

REACTIONS (5)
  - Pneumonia [Fatal]
  - Pulmonary oedema [Recovering/Resolving]
  - Bronchitis [Recovering/Resolving]
  - Leukopenia [Recovering/Resolving]
  - Decreased appetite [Recovering/Resolving]

NARRATIVE: CASE EVENT DATE: 20190103
